FAERS Safety Report 9508386 (Version 1)
Quarter: 2013Q1

REPORT INFORMATION
  Report Type: Spontaneous
  Country: US (occurrence: None)
  Receive Date: 20130305
  Receipt Date: 20130305
  Transmission Date: 20140127
  Serious: Yes (Other)
  Sender: FDA-Public Use
  Company Number: 163-21880-12051646

PATIENT
  Age: 86 Year
  Sex: Male

DRUGS (11)
  1. REVLIMID (LENALIDOMIDE) (CAPSULES) [Suspect]
     Indication: PLASMA CELL MYELOMA
     Dosage: CAPSULE, 5 MG, 21 IN 28 D, PO
     Dates: start: 20120323
  2. ASPIRIN (ACETYLSALICYLIC ACID) [Concomitant]
  3. ARIXTRA (FONDAPARINUX SODIUM) [Concomitant]
  4. DEXAMETHASONE [Concomitant]
  5. ACYCLOVIR (ACICLOVIR) [Concomitant]
  6. CARVEDILOL [Concomitant]
  7. COLACE (DOCUSATE SODIUM) [Concomitant]
  8. PREDNISOLONE [Concomitant]
  9. SELEGILINE [Concomitant]
  10. ZOFRAN (ONDANSETRON HYDROCHLORIDE) [Concomitant]
  11. FENTANYL [Concomitant]

REACTIONS (1)
  - Thrombosis [None]
